FAERS Safety Report 4977851-8 (Version None)
Quarter: 2006Q2

REPORT INFORMATION
  Report Type: 
  Country: None (occurrence: None)
  Receive Date: 20060420
  Receipt Date: 20060413
  Transmission Date: 20061013
  Serious: Yes (Other)
  Sender: FDA-Public Use
  Company Number: US-GLAXOSMITHKLINE-A0602506A

PATIENT
  Sex: Female

DRUGS (4)
  1. LOTRONEX [Suspect]
     Indication: DRUG USE FOR UNKNOWN INDICATION
     Dosage: 1MG PER DAY
     Route: 048
     Dates: start: 20050801, end: 20060101
  2. PAXIL [Concomitant]
  3. ATENOLOL [Concomitant]
  4. ESTRADIOL [Concomitant]

REACTIONS (2)
  - DIARRHOEA [None]
  - SUPRAVENTRICULAR TACHYCARDIA [None]
